FAERS Safety Report 5812367-8 (Version None)
Quarter: 2008Q3

REPORT INFORMATION
  Report Type: 
  Country: None (occurrence: None)
  Receive Date: 20080711
  Receipt Date: 20080702
  Transmission Date: 20090109
  Serious: Yes (Death, Hospitalization)
  Sender: FDA-Public Use
  Company Number: GXKR2008IT06120

PATIENT
  Age: 11 Year
  Sex: Male

DRUGS (5)
  1. PREDNISOLONE [Suspect]
     Indication: IMMUNOSUPPRESSION
     Dosage: 2 MG/KG, QD, ORAL; 1 MG/KG, QD, ORAL; 0.75 MG/KG, QD, ORAL; 0.5 MG/KG, QD, ORAL
     Route: 048
  2. METHYLPREDNISOLONE [Suspect]
     Indication: IMMUNOSUPPRESSION
     Dosage: 2 MG/KG, QD, INTRAVENOUS
     Route: 042
  3. TACROLIMUS [Suspect]
     Indication: IMMUNOSUPPRESSION
     Dosage: 15-20 NG/ML,; 5-8 NG/ML; 0.075 MG/KG, BID, NASOGASTRIC
  4. SIMULECT [Suspect]
     Indication: IMMUNOSUPPRESSION
     Dosage: 20 MG, 2 DOSES ON DAY 0 AND 4,; 20 MG PER DOSE
  5. SIROLIMUS (SIROLIMUS) [Suspect]
     Indication: IMMUNOSUPPRESSION
     Dosage: 3-5 NG/ML,

REACTIONS (20)
  - ABDOMINAL DISTENSION [None]
  - ABDOMINAL PAIN [None]
  - ACINETOBACTER INFECTION [None]
  - ADENOVIRUS INFECTION [None]
  - BILE DUCT STENOSIS [None]
  - EPSTEIN-BARR VIRUS INFECTION [None]
  - ESCHERICHIA INFECTION [None]
  - GASTROENTERITIS ROTAVIRUS [None]
  - GASTROINTESTINAL HAEMORRHAGE [None]
  - KLEBSIELLA INFECTION [None]
  - LIVER AND SMALL INTESTINE TRANSPLANT [None]
  - LIVER FUNCTION TEST ABNORMAL [None]
  - LYMPHOPENIA [None]
  - MULTI-ORGAN FAILURE [None]
  - PLEURAL EFFUSION [None]
  - PNEUMONIA [None]
  - PYREXIA [None]
  - RESPIRATORY FAILURE [None]
  - SEPSIS [None]
  - TRANSPLANT REJECTION [None]
